FAERS Safety Report 7888559-3 (Version None)
Quarter: 2011Q4

REPORT INFORMATION
  Report Type: 
  Country: None (occurrence: None)
  Receive Date: 20111103
  Receipt Date: 20111101
  Transmission Date: 20120403
  Serious: Yes (Death, Hospitalization)
  Sender: FDA-Public Use
  Company Number: PHHY2011CA71108

PATIENT
  Sex: Female

DRUGS (7)
  1. REMICADE [Concomitant]
     Dosage: 200 MG, Q8H
     Dates: end: 20110125
  2. PRILOSEC [Concomitant]
     Dosage: 20 MG, DAILY
  3. ZOLEDRONOC ACID [Suspect]
     Indication: OSTEOPOROSIS
     Dosage: UNK UKN, UNK
     Route: 042
     Dates: start: 20091006
  4. METHOTREXATE [Concomitant]
     Dosage: 20 MG, UNK
  5. PLAQUENIL [Concomitant]
     Dosage: 300 MG, DAILY
  6. DICLOFENAC [Concomitant]
     Dosage: 75 MG, BID
  7. ZOLEDRONOC ACID [Suspect]
     Dosage: UNK UKN, UNK
     Route: 042
     Dates: start: 20101103

REACTIONS (1)
  - LUNG DISORDER [None]
